APPROVED DRUG PRODUCT: FEXOFENADINE HYDROCHLORIDE
Active Ingredient: FEXOFENADINE HYDROCHLORIDE
Strength: 30MG
Dosage Form/Route: TABLET;ORAL
Application: A076502 | Product #001 | TE Code: AB
Applicant: DR REDDYS LABORATORIES LTD
Approved: Apr 11, 2006 | RLD: No | RS: No | Type: RX